FAERS Safety Report 4732213-3 (Version None)
Quarter: 2005Q3

REPORT INFORMATION
  Report Type: 
  Country: None (occurrence: None)
  Receive Date: 20050802
  Receipt Date: 20050502
  Transmission Date: 20060218
  Serious: Yes (Life-Threatening, Hospitalization, Disabling, Other)
  Sender: FDA-Public Use
  Company Number: CA-MERCK-0505CAN00017

PATIENT
  Age: 67 Year
  Sex: Male

DRUGS (4)
  1. VIOXX [Suspect]
     Indication: ARTHRALGIA
     Route: 048
     Dates: start: 20010401, end: 20010501
  2. ATORVASTATIN CALCIUM [Suspect]
     Indication: HYPERCHOLESTEROLAEMIA
     Route: 048
     Dates: start: 20001012, end: 20010101
  3. IBUPROFEN [Concomitant]
     Route: 065
  4. ACETAMINOPHEN [Concomitant]
     Route: 065

REACTIONS (14)
  - ASCITES [None]
  - CHROMATURIA [None]
  - COAGULOPATHY [None]
  - GASTRODUODENITIS [None]
  - HEPATIC FAILURE [None]
  - HEPATITIS TOXIC [None]
  - HEPATOSPLENOMEGALY [None]
  - JAUNDICE [None]
  - MALNUTRITION [None]
  - MOBILITY DECREASED [None]
  - MUSCLE ATROPHY [None]
  - PORTAL HYPERTENSION [None]
  - RENAL FAILURE ACUTE [None]
  - VARICES OESOPHAGEAL [None]
